FAERS Safety Report 23185060 (Version 1)
Quarter: 2023Q4

REPORT INFORMATION
  Report Type: Other
  Country: IE (occurrence: IE)
  Receive Date: 20231115
  Receipt Date: 20231115
  Transmission Date: 20240109
  Serious: Yes (Other)
  Sender: FDA-Public Use
  Company Number: IE-Bion-012320

PATIENT
  Sex: Male

DRUGS (1)
  1. DEXAMETHASONE [Suspect]
     Active Substance: DEXAMETHASONE
     Indication: Iris adhesions

REACTIONS (7)
  - Moraxella infection [Unknown]
  - Scleritis [Unknown]
  - Hyphaema [Unknown]
  - Cataract [Unknown]
  - Scleromalacia [Unknown]
  - Strabismus [Unknown]
  - Iris bombe [Unknown]
